FAERS Safety Report 13118590 (Version 1)
Quarter: 2017Q1

REPORT INFORMATION
  Report Type: Report from Study
  Country: BR (occurrence: BR)
  Receive Date: 20170116
  Receipt Date: 20170116
  Transmission Date: 20170428
  Serious: Yes (Other)
  Sender: FDA-Public Use
  Company Number: PHHY2016BR180050

PATIENT
  Age: 81 Year
  Sex: Male
  Weight: 70 kg

DRUGS (5)
  1. DOGMATIL [Concomitant]
     Active Substance: SULPIRIDE
     Indication: DEPRESSION
     Dosage: 26 DRP, QD (2 YEARS AGO)
     Route: 065
  2. OLCADIL [Suspect]
     Active Substance: CLOXAZOLAM
     Indication: PRODUCT USED FOR UNKNOWN INDICATION
     Dosage: 20 MG, QD (4 YEARS AGO)
     Route: 048
  3. RAZAPINA [Concomitant]
     Active Substance: MIRTAZAPINE
     Indication: DEPRESSION
     Dosage: 1 DF, QD (4 YEARS AGO)
     Route: 065
  4. PRISTIQ EXTENDED-RELEASE [Concomitant]
     Active Substance: DESVENLAFAXINE SUCCINATE
     Indication: DEPRESSION
     Dosage: 1 DF, QD (4 YEARS AGO)
     Route: 065
  5. EXELON PATCH [Suspect]
     Active Substance: RIVASTIGMINE
     Indication: COGNITIVE DISORDER
     Dosage: 4.6 MG, QD PATCH 5 (CM2),
     Route: 062
     Dates: start: 20161213, end: 20161227

REACTIONS (13)
  - Nervousness [Recovering/Resolving]
  - Screaming [Unknown]
  - Product use issue [Unknown]
  - Poisoning [Recovering/Resolving]
  - Cognitive disorder [Recovering/Resolving]
  - Depressed mood [Unknown]
  - Speech disorder [Unknown]
  - Drug resistance [Recovering/Resolving]
  - Depression [Not Recovered/Not Resolved]
  - Agitation [Recovering/Resolving]
  - Abnormal behaviour [Unknown]
  - Drug intolerance [Unknown]
  - Aggression [Recovering/Resolving]

NARRATIVE: CASE EVENT DATE: 201601
